FAERS Safety Report 4627410-1 (Version None)
Quarter: 2005Q2

REPORT INFORMATION
  Report Type: 
  Country: None (occurrence: None)
  Receive Date: 20050405
  Receipt Date: 20050321
  Transmission Date: 20051028
  Serious: Yes (Other)
  Sender: FDA-Public Use
  Company Number: 2003113752

PATIENT
  Age: 52 Year
  Sex: Female

DRUGS (5)
  1. LIPITOR [Suspect]
     Indication: BLOOD CHOLESTEROL INCREASED
     Dates: start: 20011001, end: 20020201
  2. RIZATRIPTAN BENZOATE (RIZATRIPTAN BENZOATE) [Concomitant]
  3. BISELECT (HYDROCHLOROTHIAIZDE, BISOPROLOL FUMARATE) [Concomitant]
  4. LORATADINE [Concomitant]
  5. ASPIRIN [Concomitant]

REACTIONS (43)
  - ANXIETY [None]
  - ARTHRALGIA [None]
  - DISCOMFORT [None]
  - DRUG INEFFECTIVE [None]
  - ECONOMIC PROBLEM [None]
  - EMOTIONAL DISTRESS [None]
  - EYE INFLAMMATION [None]
  - EYE PRURITUS [None]
  - EYE SWELLING [None]
  - FATIGUE [None]
  - HYPERLIPIDAEMIA [None]
  - HYPERSENSITIVITY [None]
  - HYPERTENSION [None]
  - IMMUNE SYSTEM DISORDER [None]
  - INJURY [None]
  - INSOMNIA [None]
  - LIMB INJURY [None]
  - LIPIDS INCREASED [None]
  - MARITAL PROBLEM [None]
  - MICROANGIOPATHY [None]
  - MIGRAINE [None]
  - MUSCLE STRAIN [None]
  - MUSCULOSKELETAL STIFFNESS [None]
  - MYALGIA [None]
  - NEUTROPHIL COUNT INCREASED [None]
  - OPTIC ATROPHY [None]
  - OPTIC DISC HAEMORRHAGE [None]
  - OPTIC ISCHAEMIC NEUROPATHY [None]
  - OPTIC NERVE INJURY [None]
  - PAIN [None]
  - PAIN IN EXTREMITY [None]
  - PAPILLOEDEMA [None]
  - PYREXIA [None]
  - RETINAL VASCULAR THROMBOSIS [None]
  - SEASONAL ALLERGY [None]
  - SINUS CONGESTION [None]
  - SPLINTER HAEMORRHAGES [None]
  - TENDON INJURY [None]
  - VASCULITIS [None]
  - VISION BLURRED [None]
  - VISUAL ACUITY REDUCED [None]
  - VISUAL DISTURBANCE [None]
  - VISUAL FIELD DEFECT [None]
